FAERS Safety Report 25927335 (Version 2)
Quarter: 2025Q4

REPORT INFORMATION
  Report Type: Report from Study
  Country: EU (occurrence: EU)
  Receive Date: 20251015
  Receipt Date: 20251110
  Transmission Date: 20260118
  Serious: Yes (Death)
  Sender: BIOGEN
  Company Number: EU-BIOGEN-2025BI01326951

PATIENT
  Age: 40 Year
  Sex: Male

DRUGS (16)
  1. QALSODY [Suspect]
     Active Substance: TOFERSEN
     Indication: Amyotrophic lateral sclerosis
     Route: 037
     Dates: start: 20250109, end: 20250918
  2. QALSODY [Suspect]
     Active Substance: TOFERSEN
     Route: 037
     Dates: start: 20210506, end: 20240725
  3. irtazapine 15 mg orodispersible tablet (Arrow) [Concomitant]
     Indication: Product used for unknown indication
     Dosage: 1 TABLET IN THE EVENING?NOTE TO THE NURSE: (INFORMATION ABOUT THE MEDICINAL PRODUCT) PREFERABLY IN THE EVENING AT BEDTIME.?DISSOLVE ON THE TONGUE.?NON-BREAKABLE.?NON-CRUSHABLE BUT WATER-SOLUBLE.?CAN BE ADMINISTERED BY ENTERAL TUBE.?FIRST ADMINISTRATION SCHEDULED FOR 22 AUGUST 2025 AT 9.00 P.M.
     Route: 048
  4. Tobramycin 0.3% ophthalmic solution 5 ml (TOBREX) [Concomitant]
     Indication: Product used for unknown indication
     Dosage: 1 DROP IN THE MORNING, 1 DROP AT MIDDAY, 1 DROP IN THE EVENING, 1 DROP AT BEDTIME (I.E. 4 DROPS/DAY)?NOTE TO NURSE: (INFORMATION ON THE MEDICINAL PRODUCT) SOME TIME AFTER OTHER OPHTHALMIC SOLUTIONS (15 MINUTES)
     Route: 047
  5. Vitamin A 25,000 IU per 100 g tube of ophthalmic ointment 10 g (Dulcis [Concomitant]
     Indication: Product used for unknown indication
     Dosage: 1 APPLICATION IN THE EVENING?NOTE TO NURSE: (INFORMATION ON THE MEDICINAL PRODUCT) SOME TIME AFTER OPHTHALMIC SOLUTIONS (15 MINUTES).
     Route: 047
     Dates: start: 20250822
  6. Sodium hyaluronate 0.3% single-dose ophthalmic gel (VISMED) [Concomitant]
     Indication: Product used for unknown indication
     Dosage: 2 DROPS PER DOSE?MAXIMUM PER 24 HOURS: 16 DROPS?INTERVAL BETWEEN DOSES: 1 HOUR
     Route: 047
     Dates: start: 20250822
  7. NUTRISON CONCENTRATED [Concomitant]
     Indication: Product used for unknown indication
     Dosage: TO BE TAKEN BY GASTROSTOMY ROUTE, DISCONTINUATION WITH ?EXTENDED LIFETIME. DOSE: 1 BOTTLE IN THE MORNING, TO BE ADMINISTERED OVER 8 HOURS
     Dates: start: 20250825
  8. Escitalopram (Arrow) [Concomitant]
     Indication: Product used for unknown indication
     Dosage: 25 MG IN THE MORNING?NOTE TO THE NURSE: (INFORMATION ABOUT THE MEDICINAL PRODUCT) CAN BE BROKEN IN TWO.?CRUSHABLE. WATER-SOLUBLE.?CAN BE ADMINISTERED BY ENTERAL TUBE.
     Route: 048
     Dates: start: 20250823
  9. ESOMEPRAZOLE [Concomitant]
     Active Substance: ESOMEPRAZOLE
     Indication: Product used for unknown indication
     Dosage: 4 SACHETS IN THE MORNING?NOTE TO NURSE: (INFORMATION ABOUT THE MEDICINAL PRODUCT) DISSOLVE IN A GLASS OF WATER (15 ML PER SACHET).?STIR UNTIL COMPLETELY DISPERSED, WAIT SEVERAL MINUTES AND STIR AGAIN.?STORAGE AFTER PREPARATION: 30 MINUTES.
     Route: 048
     Dates: start: 20250827
  10. Scopolamine 20 mg/1 ml solution for injection, vial [Concomitant]
     Indication: Salivary hypersecretion
     Dosage: 0.5 VIAL AT 8.00 A.M., 0.5 VIAL AT 1.00 P.M., 0.5 VIAL AT 6.00 P.M. (I.E. 1.5 VIALS/DAY)
     Route: 058
  11. MOVICOL Citron [Lemon] powder for oral suspension, sachet [Concomitant]
     Indication: Product used for unknown indication
     Dosage: 1 SACHET IN THE MORNING?NOTE TO NURSE: (INFORMATION ON THE MEDICINAL PRODUCT) PREFERABLY IN THE MORNING.?WATER-SOLUBLE.?CAN BE ADMINISTERED BY ENTERAL TUBE
     Route: 048
     Dates: start: 20250826
  12. Tramadol 50 mg orodispersible tablet (OROZAMUDOL Ge) [Concomitant]
     Indication: Pain
     Dosage: 2 TABLETS PER DOSE?MAXIMUM PER 24 HOURS: 6 TABLETS?INTERVAL BETWEEN DOSES: 4 HOURS?NOTE TO THE NURSE: (INFORMATION ABOUT THE MEDICINAL PRODUCT) FORM OF RELEASE INSTANT - WARNING: CAN BE CONFUSED ?WITH THE OTHER DOSAGE FORM (PROLONGED-RELEASE).?DISSOLVE ON THE TONGUE?NON-BREAKABLE.?NON-CRUSHABLE BUT
     Dates: start: 20250822
  13. Paracetamol 500 mg orodispersible tablet (DOLIPRANEORODOZ) [Concomitant]
     Indication: Pain
     Dosage: 2 TABLETS PER DOSE?MAXIMUM PER 24 HOURS: 8 TABLETS?INTERVAL BETWEEN DOSES: 4 HOURS?NOTE TO THE NURSE: (INFORMATION ABOUT THE MEDICINAL PRODUCT) DISSOLVE ON THE TONGUE?NON-BREAKABLE.?NON-CRUSHABLE BUT WATER-SOLUBLE.?CAN BE ADMINISTERED BY ENTERAL TUBE.
  14. Midazolam* 5 mg/5 ml vial of solution for rectal injection [Concomitant]
     Indication: Product used for unknown indication
     Dosage: MIDAZOLAM* DOSE: 0.3 MG/HOUR?NOTE TO NURSE: (INFORMATION ON THE MEDICINAL PRODUCT) WARNING: CAN BE CONFUSED WITH THE 5 MG/1 ML VIALS.?STABILITY AFTER DILUTION: 24 HOURS AT 24?C AWAY FROM LIGHT.
     Route: 058
     Dates: start: 20250828
  15. Morphine CHLORhydrate* 10 mg/1 ml solution for injection, vial (Lavois [Concomitant]
     Indication: Product used for unknown indication
     Dosage: MORPHINE DOSE: 0.2 MG/HOUR?NOTE TO NURSE: (INFORMATION ON THE MEDICINAL PRODUCT) INCOMPATIBLE WITH ALKALINE OR IODINE SOLUTIONS, AMINOPHYLLINE, METHICILLIN, CHLOROTHIAZIDE SALTS, HEPARIN, AND NITROFURANTOIN.
     Route: 058
     Dates: start: 20250828
  16. FORTIMEL COMPACT 125 ML HIGH-PROTEIN/HIGH-CALORIE, CHOCOLATE [Concomitant]
     Indication: Product used for unknown indication
     Dosage: 0.5 BOLUS PER DOSE?MAXIMUM PER 24 HOURS: 2 BOLUSES?INTERVAL BETWEEN DOSES: 1 HOUR

REACTIONS (3)
  - Respiratory disorder [Fatal]
  - Pneumonia [Fatal]
  - Respiratory distress [Fatal]

NARRATIVE: CASE EVENT DATE: 20251006
